FAERS Safety Report 11502658 (Version 2)
Quarter: 2015Q3

REPORT INFORMATION
  Report Type: Spontaneous
  Country: GR (occurrence: GR)
  Receive Date: 20150914
  Receipt Date: 20150921
  Transmission Date: 20151125
  Serious: Yes (Other)
  Sender: FDA-Public Use
  Company Number: GR-TEVA-369202ISR

PATIENT
  Age: 62 Year
  Sex: Male

DRUGS (5)
  1. ALFUZOSIN [Suspect]
     Active Substance: ALFUZOSIN
     Indication: CORONARY ARTERY DISEASE
     Dosage: 10 MILLIGRAM DAILY;
     Route: 048
  2. VITAMIN K2 [Interacting]
     Active Substance: MENAQUINONE 6
     Indication: CORONARY ARTERY DISEASE
     Dosage: 100 MICROGRAM DAILY;
     Route: 065
  3. ROSUVASTATIN [Concomitant]
     Active Substance: ROSUVASTATIN
     Dosage: 10MG DAILY
     Route: 048
  4. ATENOLOL. [Concomitant]
     Active Substance: ATENOLOL
     Dosage: 25MG DAILY
     Route: 048
  5. ASPIRIN. [Concomitant]
     Active Substance: ASPIRIN
     Dosage: 100MG DAILY
     Route: 048

REACTIONS (2)
  - Hypotension [Unknown]
  - Drug interaction [Unknown]
